FAERS Safety Report 19470399 (Version 2)
Quarter: 2021Q3

REPORT INFORMATION
  Report Type: Spontaneous
  Country: US (occurrence: US)
  Receive Date: 20210629
  Receipt Date: 20210712
  Transmission Date: 20211014
  Serious: No
  Sender: FDA-Public Use
  Company Number: US-AMGEN-USASP2021097991

PATIENT
  Age: 63 Year
  Sex: Female

DRUGS (10)
  1. OTEZLA [Suspect]
     Active Substance: APREMILAST
     Indication: PSORIASIS
     Dosage: 30 MILLIGRAM, BID
     Route: 048
     Dates: start: 20210511
  2. FLUOCINOLONE ACET [Concomitant]
     Dosage: SOLUTION
  3. ITCH?X [HYDROCORTISONE] [Concomitant]
  4. HYDROXYCHLOROQUIN [Concomitant]
     Active Substance: HYDROXYCHLOROQUINE SULFATE
  5. CHOLESTYRAMIN [Concomitant]
     Active Substance: CHOLESTYRAMINE
     Dosage: POWDER
  6. CLOBETASOL [Concomitant]
     Active Substance: CLOBETASOL
  7. TRIAMCINOLON [TRIAMCINOLONE ACETONIDE] [Concomitant]
  8. VENTOLIN HFA [Concomitant]
     Active Substance: ALBUTEROL SULFATE
  9. XYZAL [Concomitant]
     Active Substance: LEVOCETIRIZINE DIHYDROCHLORIDE
  10. PREDNISONE. [Concomitant]
     Active Substance: PREDNISONE

REACTIONS (1)
  - Therapeutic product effect incomplete [Not Recovered/Not Resolved]

NARRATIVE: CASE EVENT DATE: 202106
